FAERS Safety Report 5247420-3 (Version None)
Quarter: 2007Q1

REPORT INFORMATION
  Report Type: 
  Country: None (occurrence: None)
  Receive Date: 20070223
  Receipt Date: 20070223
  Transmission Date: 20070707
  Serious: No
  Sender: FDA-Public Use
  Company Number: None

PATIENT
  Sex: Male

DRUGS (1)
  1. CAMPTOSAR [Suspect]

REACTIONS (3)
  - ANAEMIA [None]
  - OBSTRUCTION [None]
  - PNEUMONIA [None]
